FAERS Safety Report 16291068 (Version 1)
Quarter: 2019Q2

REPORT INFORMATION
  Report Type: Report from Study
  Country: US (occurrence: US)
  Receive Date: 20190509
  Receipt Date: 20190509
  Transmission Date: 20190711
  Serious: Yes (Hospitalization, Other)
  Sender: FDA-Public Use
  Company Number: US-GILEAD-2019-0406710

PATIENT
  Age: 58 Year
  Sex: Female

DRUGS (23)
  1. ONDANSETRON [Concomitant]
     Active Substance: ONDANSETRON
  2. TADALAFIL. [Concomitant]
     Active Substance: TADALAFIL
  3. ABACAVIR. [Concomitant]
     Active Substance: ABACAVIR
  4. MIDODRINE [Concomitant]
     Active Substance: MIDODRINE
  5. SULFADIAZINE. [Concomitant]
     Active Substance: SULFADIAZINE
  6. TYLENOL COLD MAX [Concomitant]
  7. CAPSAICIN. [Concomitant]
     Active Substance: CAPSAICIN
  8. METHADONE [Concomitant]
     Active Substance: METHADONE HYDROCHLORIDE
  9. OXYCODONE [Concomitant]
     Active Substance: OXYCODONE
  10. VOLTAREN [DICLOFENAC DIETHYLAMINE] [Concomitant]
     Active Substance: DICLOFENAC DIETHYLAMINE
  11. AMBRISENTAN [Suspect]
     Active Substance: AMBRISENTAN
     Indication: PULMONARY HYPERTENSION
     Dosage: 5 MG, QD
     Route: 065
  12. LANOXIN [Concomitant]
     Active Substance: DIGOXIN
  13. SEVELAMER CARBONATE. [Concomitant]
     Active Substance: SEVELAMER CARBONATE
  14. CYCLOBENZAPRINE. [Concomitant]
     Active Substance: CYCLOBENZAPRINE
  15. NYSTATIN. [Concomitant]
     Active Substance: NYSTATIN
  16. BREO ELLIPTA [Concomitant]
     Active Substance: FLUTICASONE FUROATE\VILANTEROL TRIFENATATE
  17. ELIQUIS [Concomitant]
     Active Substance: APIXABAN
  18. LIDOCAINE. [Concomitant]
     Active Substance: LIDOCAINE
  19. ALBUTEROL [SALBUTAMOL SULFATE] [Concomitant]
     Active Substance: ALBUTEROL SULFATE
  20. PEG [MACROGOL 3350] [Concomitant]
  21. ROZEREM [Concomitant]
     Active Substance: RAMELTEON
  22. SENNOSIDES. [Concomitant]
     Active Substance: SENNOSIDES
  23. TENOFOVIR [Concomitant]
     Active Substance: TENOFOVIR

REACTIONS (2)
  - Dialysis [Unknown]
  - Mental status changes [Unknown]

NARRATIVE: CASE EVENT DATE: 20190422
